FAERS Safety Report 19243593 (Version 1)
Quarter: 2021Q2

REPORT INFORMATION
  Report Type: Spontaneous
  Country: PL (occurrence: PL)
  Receive Date: 20210511
  Receipt Date: 20210511
  Transmission Date: 20210717
  Serious: Yes (Other)
  Sender: FDA-Public Use
  Company Number: NVSC2021PL047449

PATIENT
  Sex: Male

DRUGS (1)
  1. KYMRIAH [Suspect]
     Active Substance: TISAGENLECLEUCEL
     Indication: PRODUCT USED FOR UNKNOWN INDICATION
     Dosage: UNK (3.7 X 10 (6))
     Route: 065
     Dates: start: 20210208

REACTIONS (4)
  - Cytokine release syndrome [Unknown]
  - Serum ferritin increased [Unknown]
  - Asymptomatic COVID-19 [Unknown]
  - Interleukin level increased [Unknown]
